FAERS Safety Report 14659179 (Version 3)
Quarter: 2018Q2

REPORT INFORMATION
  Report Type: Spontaneous
  Country: BR (occurrence: BR)
  Receive Date: 20180320
  Receipt Date: 20180409
  Transmission Date: 20180711
  Serious: Yes (Hospitalization, Other)
  Sender: FDA-Public Use
  Company Number: BR-PFIZER INC-2018099861

PATIENT
  Age: 47 Year
  Sex: Male

DRUGS (3)
  1. METHOTREXATE SODIUM. [Suspect]
     Active Substance: METHOTREXATE SODIUM
     Indication: SPINAL PAIN
     Dosage: UNK
     Dates: end: 2004
  2. CALCORT [Suspect]
     Active Substance: DEFLAZACORT
     Indication: SPINAL PAIN
     Dosage: UNK
     Dates: end: 2004
  3. DIPROSPAN /00008504/ [Suspect]
     Active Substance: BETAMETHASONE DIPROPIONATE
     Indication: SPINAL PAIN
     Dosage: UNK
     Dates: end: 2004

REACTIONS (3)
  - Hepatic cirrhosis [Not Recovered/Not Resolved]
  - Ankylosing spondylitis [Not Recovered/Not Resolved]
  - Spinal deformity [Not Recovered/Not Resolved]

NARRATIVE: CASE EVENT DATE: 2004
